FAERS Safety Report 9394922 (Version 3)
Quarter: 2013Q3

REPORT INFORMATION
  Report Type: Spontaneous
  Country: IT (occurrence: IT)
  Receive Date: 20130711
  Receipt Date: 20130906
  Transmission Date: 20140515
  Serious: Yes (Hospitalization)
  Sender: FDA-Public Use
  Company Number: IT-PFIZER INC-2013203505

PATIENT
  Age: 43 Year
  Sex: Female

DRUGS (2)
  1. XANAX [Suspect]
     Dosage: 20 DF, TOTAL DOSE
     Route: 048
     Dates: start: 20130623, end: 20130623
  2. TRITTICO [Suspect]
     Dosage: 30 DF, TOTAL DOSE
     Route: 048
     Dates: start: 20130623, end: 20130623

REACTIONS (8)
  - Overdose [Recovered/Resolved]
  - Intentional self-injury [Recovered/Resolved]
  - Altered state of consciousness [Recovered/Resolved]
  - Drug abuse [Recovered/Resolved]
  - Mydriasis [Recovered/Resolved]
  - Sopor [Recovered/Resolved]
  - Asthenopia [Recovered/Resolved]
  - Blood ethanol increased [Recovered/Resolved]
